FAERS Safety Report 7880957-7 (Version None)
Quarter: 2011Q4

REPORT INFORMATION
  Report Type: 
  Country: None (occurrence: None)
  Receive Date: 20111101
  Receipt Date: 20111025
  Transmission Date: 20120403
  Serious: Yes (Hospitalization, Other)
  Sender: FDA-Public Use
  Company Number: IT-ABBOTT-11P-083-0863339-00

PATIENT
  Sex: Male

DRUGS (1)
  1. CLARITHROMYCIN [Suspect]
     Indication: PRODUCT USED FOR UNKNOWN INDICATION
     Dosage: ONE UNIT DAILY
     Route: 048
     Dates: start: 20111003, end: 20111007

REACTIONS (3)
  - ALLERGIC OEDEMA [None]
  - URTICARIA [None]
  - HYPERSENSITIVITY [None]
